FAERS Safety Report 8442779-8 (Version None)
Quarter: 2012Q2

REPORT INFORMATION
  Report Type: 
  Country: None (occurrence: None)
  Receive Date: 20120615
  Receipt Date: 20120606
  Transmission Date: 20120825
  Serious: Yes (Hospitalization)
  Sender: FDA-Public Use
  Company Number: US-ASTRAZENECA-2010SE42927

PATIENT
  Age: 75 Year
  Sex: Male

DRUGS (2)
  1. NEXIUM [Suspect]
     Route: 048
  2. CELEBREX [Concomitant]

REACTIONS (3)
  - ARTHRITIS [None]
  - PAIN [None]
  - GOUT [None]
